FAERS Safety Report 8111690-4 (Version None)
Quarter: 2012Q1

REPORT INFORMATION
  Report Type: 
  Country: None (occurrence: None)
  Receive Date: 20120203
  Receipt Date: 20120125
  Transmission Date: 20120608
  Serious: Yes (Other)
  Sender: FDA-Public Use
  Company Number: US-US-EMD SERONO, INC.-7107558

PATIENT
  Sex: Female
  Weight: 82 kg

DRUGS (4)
  1. CYCLOBENZAPRINE [Concomitant]
  2. REBIF [Suspect]
     Indication: MULTIPLE SCLEROSIS
     Route: 058
     Dates: start: 20111001
  3. AMITRIPTYLINE HCL [Concomitant]
  4. POTASSIUM CHLORIDE [Concomitant]
     Dates: end: 20120117

REACTIONS (6)
  - INJECTION SITE SCAB [None]
  - INJECTION SITE EXFOLIATION [None]
  - INJECTION SITE DISCOLOURATION [None]
  - HAEMATURIA [None]
  - CONSTIPATION [None]
  - URINARY TRACT INFECTION [None]
